FAERS Safety Report 6794153-8 (Version None)
Quarter: 2010Q2

REPORT INFORMATION
  Report Type: 
  Country: None (occurrence: None)
  Receive Date: 20100624
  Receipt Date: 20080709
  Transmission Date: 20101027
  Serious: No
  Sender: FDA-Public Use
  Company Number: US-PFIZER INC-ENC200800134

PATIENT
  Age: 60 Year
  Sex: Male

DRUGS (11)
  1. ARGATROBAN [Suspect]
     Indication: HEPARIN-INDUCED THROMBOCYTOPENIA
     Dosage: FREQUENCY:  UNK
     Route: 042
     Dates: start: 20080708, end: 20080709
  2. INSULIN [Concomitant]
  3. METOPROLOL [Concomitant]
  4. MORPHINE [Concomitant]
  5. MIDAZOLAM HYDROCHLORIDE [Concomitant]
  6. OLANZAPINE [Concomitant]
  7. VANCOMYCIN [Concomitant]
  8. DOPAMINE HCL [Concomitant]
  9. AZITHROMYCIN [Concomitant]
  10. LEVETIRACETAM [Concomitant]
  11. ESOMEPRAZOLE MAGNESIUM [Concomitant]

REACTIONS (1)
  - COAGULATION TIME PROLONGED [None]
